FAERS Safety Report 11066226 (Version 1)
Quarter: 2015Q2

REPORT INFORMATION
  Report Type: Spontaneous
  Country: GB (occurrence: None)
  Receive Date: 20150423
  Receipt Date: 20150423
  Transmission Date: 20150821
  Serious: Yes (Disabling, Other)
  Sender: FDA-Public Use
  Company Number: GB-DEXPHARM-20150243

PATIENT
  Age: 47 Year
  Sex: Female

DRUGS (1)
  1. OMEPRAZOLE. [Suspect]
     Active Substance: OMEPRAZOLE
     Indication: GASTROOESOPHAGEAL REFLUX DISEASE
     Route: 048
     Dates: start: 20150130, end: 20150228

REACTIONS (10)
  - Anxiety [None]
  - Crying [None]
  - Panic attack [None]
  - Depression [None]
  - Abnormal behaviour [None]
  - Suicidal ideation [None]
  - Vomiting [None]
  - Mental impairment [None]
  - Confusional state [None]
  - Fear [None]

NARRATIVE: CASE EVENT DATE: 201502
